FAERS Safety Report 10157423 (Version 1)
Quarter: 2014Q2

REPORT INFORMATION
  Report Type: Spontaneous
  Country: DE (occurrence: DE)
  Receive Date: 20140507
  Receipt Date: 20140507
  Transmission Date: 20141212
  Serious: Yes (Other)
  Sender: FDA-Public Use
  Company Number: DE-PFIZER INC-2014122114

PATIENT
  Age: 31 Year
  Sex: Female

DRUGS (4)
  1. LYRICA [Suspect]
     Indication: RESTLESS LEGS SYNDROME
     Dosage: 150 MG, 1X/DAY
     Route: 048
  2. LYRICA [Suspect]
     Dosage: 150 MG, 2X/DAY
     Route: 048
  3. LYRICA [Suspect]
     Dosage: 150 MG, 3X/DAY
     Route: 048
  4. PARACETAMOL [Concomitant]
     Indication: PAIN
     Dosage: 500 MG, 1X/DAY

REACTIONS (3)
  - Off label use [Unknown]
  - Premature rupture of membranes [Unknown]
  - Pain [Unknown]
